FAERS Safety Report 7343053-3 (Version None)
Quarter: 2011Q1

REPORT INFORMATION
  Report Type: 
  Country: None (occurrence: None)
  Receive Date: 20110310
  Receipt Date: 20110309
  Transmission Date: 20110831
  Serious: Yes (Hospitalization, Other)
  Sender: FDA-Public Use
  Company Number: DE-ABBOTT-11P-062-0701715-00

PATIENT
  Age: 55 Year
  Sex: Male

DRUGS (29)
  1. NORVIR [Suspect]
     Indication: HIV INFECTION
     Dates: start: 20040225
  2. SAQUINAVIR [Suspect]
     Indication: HIV INFECTION
     Dates: start: 20060609, end: 20061022
  3. ASPIRIN [Concomitant]
     Indication: PRODUCT USED FOR UNKNOWN INDICATION
  4. LEVOTHYROXINE SODIUM [Concomitant]
     Indication: PRODUCT USED FOR UNKNOWN INDICATION
     Dates: start: 20091125
  5. BLINDED THERAPY [Suspect]
     Indication: HIV INFECTION
     Dates: start: 20060609, end: 20061022
  6. TAMSULOSIN HYDROCHLORIDE [Concomitant]
     Indication: PRODUCT USED FOR UNKNOWN INDICATION
  7. ATAZANAVIR SULFATE [Suspect]
     Indication: HIV INFECTION
     Route: 065
     Dates: start: 20060609, end: 20061022
  8. EMTRICITABINE/TENOFOVIR DISOPROXIL FUMARATE [Suspect]
     Indication: HIV INFECTION
     Route: 048
     Dates: start: 20060609, end: 20081116
  9. CLOPIDOGREL BISULFATE [Concomitant]
     Indication: PRODUCT USED FOR UNKNOWN INDICATION
  10. LOPERAMIDE HYDROCHLORIDE [Concomitant]
     Indication: PRODUCT USED FOR UNKNOWN INDICATION
     Dates: start: 20060927
  11. METOPROLOL SUCCINATE [Concomitant]
     Indication: PRODUCT USED FOR UNKNOWN INDICATION
     Dates: start: 20070411
  12. TRIMIPRAMINE MALEATE [Concomitant]
     Indication: PRODUCT USED FOR UNKNOWN INDICATION
     Dates: start: 20070618
  13. LAMIVUDINE [Suspect]
     Indication: HIV INFECTION
     Dates: start: 20081118
  14. TIPRANAVIR [Suspect]
     Indication: HIV INFECTION
     Dates: start: 20061023
  15. IBUPROFEN [Concomitant]
     Indication: PRODUCT USED FOR UNKNOWN INDICATION
  16. OMEGA-3 MARINE TRIGLYCERIDES [Concomitant]
     Indication: PRODUCT USED FOR UNKNOWN INDICATION
  17. RAMIPRIL [Concomitant]
     Indication: PRODUCT USED FOR UNKNOWN INDICATION
     Dates: start: 20100322
  18. ZOLPIDEM TARTRATE [Concomitant]
     Indication: PRODUCT USED FOR UNKNOWN INDICATION
     Dates: start: 20080710
  19. EFAVIRENZ [Suspect]
     Indication: HIV INFECTION
     Dates: start: 20061023
  20. PRAVASTATIN SODIUM [Concomitant]
     Indication: PRODUCT USED FOR UNKNOWN INDICATION
     Dates: start: 20090922
  21. ENFUVIRTIDE [Suspect]
     Indication: HIV INFECTION
     Dates: start: 20060609, end: 20060620
  22. RALTEGRAVIR [Suspect]
     Indication: HIV INFECTION
     Route: 048
     Dates: start: 20061023
  23. FLUVASTATIN SODIUM [Concomitant]
     Indication: PRODUCT USED FOR UNKNOWN INDICATION
     Dates: start: 20070517
  24. NITROGLYCERIN [Concomitant]
     Indication: PRODUCT USED FOR UNKNOWN INDICATION
  25. NORVIR [Suspect]
     Dates: start: 20061023
  26. TAB MK-0518 [Suspect]
     Indication: HIV INFECTION
     Route: 048
     Dates: start: 20061023
  27. DIDANOSINE [Suspect]
     Indication: HIV INFECTION
     Route: 065
     Dates: start: 20061023
  28. EZETIMIBE [Concomitant]
     Indication: PRODUCT USED FOR UNKNOWN INDICATION
     Dates: start: 20070306
  29. PENTAERYTHRITOL TETRANITRATE [Concomitant]
     Indication: PRODUCT USED FOR UNKNOWN INDICATION
     Dates: start: 20070410

REACTIONS (10)
  - APHASIA [None]
  - NEURODEGENERATIVE DISORDER [None]
  - ANGINA UNSTABLE [None]
  - CEREBRAL ATROPHY [None]
  - PARKINSONISM [None]
  - MUSCLE SPASMS [None]
  - FINE MOTOR DELAY [None]
  - ACUTE MYOCARDIAL INFARCTION [None]
  - MOVEMENT DISORDER [None]
  - DISORIENTATION [None]
